FAERS Safety Report 21708085 (Version 3)
Quarter: 2022Q4

REPORT INFORMATION
  Report Type: Spontaneous
  Country: US (occurrence: US)
  Receive Date: 20221209
  Receipt Date: 20221226
  Transmission Date: 20230113
  Serious: Yes (Other)
  Sender: FDA-Public Use
  Company Number: US-ALLERGAN-2240001US

PATIENT

DRUGS (2)
  1. DURYSTA [Suspect]
     Active Substance: BIMATOPROST
     Indication: Glaucoma
     Dosage: 0.01 MG, SINGLE
     Route: 031
     Dates: start: 20221201, end: 20221201
  2. DURYSTA [Suspect]
     Active Substance: BIMATOPROST
     Indication: Intraocular pressure increased

REACTIONS (2)
  - Toxic anterior segment syndrome [Unknown]
  - Eye pain [Unknown]
